FAERS Safety Report 9720178 (Version 1)
Quarter: 2013Q4

REPORT INFORMATION
  Report Type: Report from Study
  Country: ZA (occurrence: ZA)
  Receive Date: 20131129
  Receipt Date: 20131129
  Transmission Date: 20140711
  Serious: Yes (Death, Hospitalization, Other)
  Sender: FDA-Public Use
  Company Number: ZA-ROCHE-1308445

PATIENT
  Age: 63 Year
  Sex: Male

DRUGS (2)
  1. MIRCERA [Suspect]
     Indication: NEPHROGENIC ANAEMIA
     Route: 058
     Dates: start: 20120211, end: 201310
  2. MIRCERA [Suspect]
     Route: 058
     Dates: start: 201106

REACTIONS (3)
  - Death [Fatal]
  - Sepsis [Unknown]
  - Multi-organ failure [Unknown]
